FAERS Safety Report 6171657-2 (Version None)
Quarter: 2009Q2

REPORT INFORMATION
  Report Type: 
  Country: None (occurrence: None)
  Receive Date: 20090429
  Receipt Date: 20090427
  Transmission Date: 20091009
  Serious: Yes (Other)
  Sender: FDA-Public Use
  Company Number: US-AVENTIS-200913588US

PATIENT
  Sex: Female

DRUGS (5)
  1. LANTUS [Suspect]
     Indication: TYPE 2 DIABETES MELLITUS
     Route: 058
     Dates: start: 20060101
  2. OPTICLIK (INSULIN INJECTION PEN) [Suspect]
     Indication: TYPE 2 DIABETES MELLITUS
     Dates: start: 20060101
  3. METFORMIN HCL [Concomitant]
     Dosage: DOSE: UNK
  4. GLIPIZIDE [Concomitant]
     Dosage: DOSE: UNK
  5. TARCEVA                            /01611401/ [Concomitant]
     Dosage: DOSE: UNK

REACTIONS (1)
  - NEOPLASM MALIGNANT [None]
